FAERS Safety Report 7903264-2 (Version None)
Quarter: 2011Q4

REPORT INFORMATION
  Report Type: 
  Country: None (occurrence: None)
  Receive Date: 20111109
  Receipt Date: 20111103
  Transmission Date: 20120403
  Serious: Yes (Other)
  Sender: FDA-Public Use
  Company Number: US-B.I. PHARMACEUTICALS,INC./RIDGEFIELD-2011-BP-25577BP

PATIENT
  Sex: Female

DRUGS (2)
  1. UNSPECIFIED MEDICATIONS [Concomitant]
  2. CATAPRES-TTS-1 [Suspect]
     Indication: HYPERTENSION
     Route: 061

REACTIONS (2)
  - ERYTHEMA [None]
  - LUNG NEOPLASM MALIGNANT [None]
